FAERS Safety Report 23097777 (Version 1)
Quarter: 2023Q4

REPORT INFORMATION
  Report Type: Spontaneous
  Country: US (occurrence: US)
  Receive Date: 20231023
  Receipt Date: 20231023
  Transmission Date: 20240110
  Serious: No
  Sender: FDA-Public Use
  Company Number: US-ELI_LILLY_AND_COMPANY-US202310011841

PATIENT
  Age: 49 Year
  Sex: Female

DRUGS (3)
  1. TALTZ [Suspect]
     Active Substance: IXEKIZUMAB
     Indication: Psoriasis
     Dosage: UNK UNK, OTHER (EVERY 2 WEEKS)
     Route: 065
     Dates: start: 20230221
  2. TALTZ [Suspect]
     Active Substance: IXEKIZUMAB
     Indication: Psoriatic arthropathy
     Dosage: UNK UNK, UNKNOWN
     Route: 065
     Dates: start: 202306
  3. TALTZ [Suspect]
     Active Substance: IXEKIZUMAB
     Dosage: UNK UNK, OTHER (EVERY 2 WEEKS)
     Route: 065

REACTIONS (1)
  - Psoriasis [Recovering/Resolving]

NARRATIVE: CASE EVENT DATE: 20230701
